FAERS Safety Report 10039506 (Version 2)
Quarter: 2014Q4

REPORT INFORMATION
  Report Type: Report from Study
  Country: DE (occurrence: DE)
  Receive Date: 20140326
  Receipt Date: 20141215
  Transmission Date: 20150528
  Serious: No
  Sender: FDA-Public Use
  Company Number: DE-OTSUKA-US-2014-10581

PATIENT
  Age: 50 Year
  Sex: Male

DRUGS (6)
  1. OSTEOTRIOL [Concomitant]
     Indication: PROPHYLAXIS
     Dosage: 0.5 MG MILLIGRAM(S), DAILY DOSE
     Route: 048
     Dates: start: 20110820
  2. OPC-41061 [Suspect]
     Active Substance: TOLVAPTAN
     Indication: CONGENITAL CYSTIC KIDNEY DISEASE
     Dosage: 90 MG MILLIGRAM(S), DAILY DOSE
     Route: 048
     Dates: start: 20111227, end: 201309
  3. LERCANIDIPINE [Concomitant]
     Active Substance: LERCANIDIPINE
     Indication: HYPERTENSION
     Dosage: 10 MG MILLIGRAM(S), DAILY DOSE
     Route: 048
     Dates: start: 20111227
  4. LERCANIDIPINE [Concomitant]
     Active Substance: LERCANIDIPINE
     Indication: PROPHYLAXIS
  5. ENALAPRIL [Concomitant]
     Active Substance: ENALAPRIL
     Indication: HYPERTENSION
     Dosage: 10 MG MILLIGRAM(S), DAILY DOSE
     Route: 048
     Dates: start: 20120602
  6. ADENURIC [Concomitant]
     Active Substance: FEBUXOSTAT
     Indication: PRODUCT USED FOR UNKNOWN INDICATION
     Dosage: 80 MG MILLIGRAM(S), DAILY DOSE
     Route: 048
     Dates: start: 20130919

REACTIONS (1)
  - Depression [Recovered/Resolved]

NARRATIVE: CASE EVENT DATE: 201209
